FAERS Safety Report 4285016-0 (Version None)
Quarter: 2004Q1

REPORT INFORMATION
  Report Type: 
  Country: None (occurrence: None)
  Receive Date: 20040204
  Receipt Date: 20031219
  Transmission Date: 20041129
  Serious: Yes (Hospitalization, Disabling, Other)
  Sender: FDA-Public Use
  Company Number: WAES 0312USA02233

PATIENT
  Age: 45 Year
  Sex: Male
  Weight: 69 kg

DRUGS (7)
  1. ALBUTEROL [Concomitant]
  2. TIAZAC [Concomitant]
  3. ADVAIR DISKUS 100/50 [Concomitant]
     Dates: end: 20040101
  4. SINGULAIR [Suspect]
     Indication: ASTHMA
     Route: 048
     Dates: start: 19990101, end: 20040101
  5. PROTONIX [Concomitant]
  6. ULTRAM [Concomitant]
  7. AMBIEN [Concomitant]

REACTIONS (5)
  - CARDIOMEGALY [None]
  - CARDIOMYOPATHY [None]
  - CONFUSIONAL STATE [None]
  - EOSINOPHILIC PNEUMONIA [None]
  - TROPONIN INCREASED [None]
